FAERS Safety Report 7410962-6 (Version None)
Quarter: 2011Q2

REPORT INFORMATION
  Report Type: 
  Country: None (occurrence: None)
  Receive Date: 20110413
  Receipt Date: 20110214
  Transmission Date: 20111010
  Serious: Yes (Hospitalization, Other)
  Sender: FDA-Public Use
  Company Number: US-BAYER-201039408NA

PATIENT
  Age: 22 Year
  Sex: Female
  Weight: 56.689 kg

DRUGS (12)
  1. AUGMENTIN XR [Concomitant]
     Dosage: UNK
     Dates: start: 20040601
  2. NSAID'S [Concomitant]
     Dosage: UNK
     Dates: start: 20010101
  3. YASMIN [Suspect]
     Indication: CONTRACEPTION
     Dates: start: 20031001, end: 20040928
  4. PHENYTEK [Concomitant]
     Indication: CONVULSION
     Dosage: UNK UNK, QD
     Route: 048
     Dates: start: 20040601, end: 20041201
  5. CLEOCIN [Concomitant]
     Dosage: UNK
     Dates: start: 20040101, end: 20040801
  6. LEXAPRO [Concomitant]
     Indication: DEPRESSION
     Dosage: UNK UNK, QD
     Dates: start: 20040101, end: 20050101
  7. PHENYTOIN [Concomitant]
  8. CLARINEX [Concomitant]
     Dosage: UNK UNK, QD
     Route: 048
  9. MECLIZINE [Concomitant]
     Dosage: UNK UNK, QID
     Route: 048
  10. PROMETHAZINE [Concomitant]
     Dosage: UNK UNK, QID
     Route: 054
  11. PAXIL [Concomitant]
     Indication: DEPRESSION
     Dosage: UNK UNK, QD
     Route: 048
     Dates: start: 20040101, end: 20050101
  12. SKELAXIN [Concomitant]
     Dosage: 800 MG, TID
     Route: 048

REACTIONS (1)
  - DEEP VEIN THROMBOSIS [None]
